FAERS Safety Report 24038710 (Version 1)
Quarter: 2024Q3

REPORT INFORMATION
  Report Type: Spontaneous
  Country: US (occurrence: US)
  Receive Date: 20240702
  Receipt Date: 20240702
  Transmission Date: 20241017
  Serious: Yes (Hospitalization, Other)
  Sender: ENDO
  Company Number: US-ENDO USA, INC.-2024-002704

PATIENT
  Age: 17 Year
  Sex: Male

DRUGS (1)
  1. PERCOCET [Suspect]
     Active Substance: ACETAMINOPHEN\OXYCODONE HYDROCHLORIDE
     Indication: Pain
     Dosage: 1 DOSAGE FORM, UNKNOWN, VIA AN ELECTRONIC VAPE PEN

REACTIONS (6)
  - Confirmed e-cigarette or vaping product use associated lung injury [Not Recovered/Not Resolved]
  - Acute respiratory failure [Not Recovered/Not Resolved]
  - Unresponsive to stimuli [Unknown]
  - Miosis [Unknown]
  - Drug abuse [Unknown]
  - Overdose [Unknown]
